FAERS Safety Report 15448964 (Version 1)
Quarter: 2018Q3

REPORT INFORMATION
  Report Type: Spontaneous
  Country: US (occurrence: US)
  Receive Date: 20180926
  Receipt Date: 20180926
  Transmission Date: 20181010
  Serious: Yes (Other)
  Sender: FDA-Public Use
  Company Number: None

PATIENT
  Age: 59 Year
  Sex: Female
  Weight: 66.5 kg

DRUGS (5)
  1. DIPHENHYDRAMINE 50 MG IV [Concomitant]
     Dates: start: 20180924, end: 20180924
  2. HYDROCORTISONE SUCCINATE 100 MG [Concomitant]
     Dates: start: 20180924, end: 20180924
  3. KRYSTEXXA [Suspect]
     Active Substance: PEGLOTICASE
     Indication: GOUT
     Dosage: ?          OTHER FREQUENCY:ONE TIME INFUSION;?
     Route: 041
     Dates: start: 20180924, end: 20180924
  4. ATROVENT [Concomitant]
     Active Substance: IPRATROPIUM BROMIDE
     Dates: start: 20180924, end: 20180924
  5. ALBUTEROL. [Concomitant]
     Active Substance: ALBUTEROL
     Dates: start: 20180924, end: 20180924

REACTIONS (3)
  - Chest discomfort [None]
  - Throat irritation [None]
  - Therapy cessation [None]

NARRATIVE: CASE EVENT DATE: 20180924
